FAERS Safety Report 9866851 (Version 1)
Quarter: 2014Q1

REPORT INFORMATION
  Report Type: Spontaneous
  Country: US (occurrence: None)
  Receive Date: 20140203
  Receipt Date: 20140203
  Transmission Date: 20141002
  Serious: No
  Sender: FDA-Public Use
  Company Number: None

PATIENT
  Age: 59 Year
  Sex: Male
  Weight: 86.18 kg

DRUGS (1)
  1. DULOXETINE HCL [Suspect]
     Indication: GENERALISED ANXIETY DISORDER
     Dosage: TAKEN BY MOUTH

REACTIONS (5)
  - Somnolence [None]
  - Paraesthesia oral [None]
  - Muscle twitching [None]
  - Product substitution issue [None]
  - Therapeutic response unexpected with drug substitution [None]
